FAERS Safety Report 7979721-X (Version None)
Quarter: 2011Q4

REPORT INFORMATION
  Report Type: 
  Country: None (occurrence: None)
  Receive Date: 20111214
  Receipt Date: 20111130
  Transmission Date: 20120403
  Serious: Yes (Death)
  Sender: FDA-Public Use
  Company Number: JP-ROCHE-1019811

PATIENT
  Age: 79 Year
  Sex: Male

DRUGS (5)
  1. DOXORUBICIN HCL [Concomitant]
     Indication: B-CELL LYMPHOMA
  2. RITUXIMAB [Suspect]
     Indication: B-CELL LYMPHOMA
     Route: 042
  3. CYCLOPHOSPHAMIDE [Concomitant]
     Indication: B-CELL LYMPHOMA
  4. PREDNISOLONE [Concomitant]
     Indication: B-CELL LYMPHOMA
  5. VINCRISTINE SULFATE [Concomitant]
     Indication: B-CELL LYMPHOMA

REACTIONS (1)
  - PROGRESSIVE MULTIFOCAL LEUKOENCEPHALOPATHY [None]
